FAERS Safety Report 5518748-4 (Version None)
Quarter: 2007Q4

REPORT INFORMATION
  Report Type: 
  Country: None (occurrence: None)
  Receive Date: 20071115
  Receipt Date: 20071106
  Transmission Date: 20080405
  Serious: Yes (Hospitalization, Other)
  Sender: FDA-Public Use
  Company Number: US-GENENTECH-250873

PATIENT
  Sex: Male
  Weight: 69.5 kg

DRUGS (1)
  1. SOMATROPIN [Suspect]
     Indication: RENAL DISORDER
     Dosage: 2.6 MG, 7/WEEK
     Route: 058
     Dates: start: 20061206

REACTIONS (1)
  - RENAL IMPAIRMENT [None]
